FAERS Safety Report 4379307-2 (Version None)
Quarter: 2004Q2

REPORT INFORMATION
  Report Type: 
  Country: None (occurrence: None)
  Receive Date: 20040610
  Receipt Date: 20040602
  Transmission Date: 20050107
  Serious: Yes (Other)
  Sender: FDA-Public Use
  Company Number: US-JNJFOC-20040601316

PATIENT
  Age: 65 Year
  Sex: Female
  Weight: 77.1115 kg

DRUGS (20)
  1. LEVAQUIN [Suspect]
     Indication: CELLULITIS
     Dosage: 500 MG
     Dates: start: 20031209
  2. PREDNISONE TAB [Concomitant]
  3. LASIX [Concomitant]
  4. KCL (POTASSIUM CHLORIDE) [Concomitant]
  5. PREMARIN [Concomitant]
  6. PRINIVIL [Concomitant]
  7. PROZAC [Concomitant]
  8. DESERYL (METHYSERGIDE MALEATE) [Concomitant]
  9. CELEBREX [Concomitant]
  10. FLEXERIL [Concomitant]
  11. METHADONE (METHADONE) [Concomitant]
  12. GUEFINEX (ALL OTHER THEREPEUTIC PRODUCTS) [Concomitant]
  13. FIORINAL [Concomitant]
  14. ADVAIR (SERETIDE MITE) [Concomitant]
  15. NASOCORT (BUDESONIDE) [Concomitant]
  16. PREVENTIL (SALBUTAMOL) [Concomitant]
  17. ZANTAC [Concomitant]
  18. SINGULAIR [Concomitant]
  19. ENTEX LA (TOTOLIN) [Concomitant]
  20. MYCELEX [Concomitant]

REACTIONS (9)
  - AMNESIA [None]
  - APHASIA [None]
  - ARTHRALGIA [None]
  - CONFUSIONAL STATE [None]
  - DIFFICULTY IN WALKING [None]
  - HYPOAESTHESIA ORAL [None]
  - JOINT SWELLING [None]
  - PAIN IN EXTREMITY [None]
  - SPEECH DISORDER [None]
